FAERS Safety Report 5356294-1 (Version None)
Quarter: 2007Q2

REPORT INFORMATION
  Report Type: 
  Country: None (occurrence: None)
  Receive Date: 20070613
  Receipt Date: 20070601
  Transmission Date: 20071010
  Serious: Yes (Hospitalization)
  Sender: FDA-Public Use
  Company Number: US-PFIZER INC-2007043768

PATIENT
  Age: 74 Year
  Sex: Female
  Weight: 62.1 kg

DRUGS (1)
  1. SU-011,248 [Suspect]
     Indication: FOLLICULAR THYROID CANCER
     Route: 048

REACTIONS (3)
  - DEHYDRATION [None]
  - PLATELET COUNT DECREASED [None]
  - URINARY TRACT INFECTION [None]
